FAERS Safety Report 9011331 (Version 1)
Quarter: 2013Q1

REPORT INFORMATION
  Report Type: Spontaneous
  Country: AR (occurrence: AR)
  Receive Date: 20130108
  Receipt Date: 20130108
  Transmission Date: 20140127
  Serious: Yes (Hospitalization, Disabling)
  Sender: FDA-Public Use
  Company Number: AR-JNJFOC-20120807484

PATIENT
  Age: 42 Year
  Sex: Female

DRUGS (2)
  1. REMICADE [Suspect]
     Indication: PSORIATIC ARTHROPATHY
     Route: 042
     Dates: start: 20121121
  2. REMICADE [Suspect]
     Indication: PSORIATIC ARTHROPATHY
     Dosage: 1ST INFUSION IN AUG
     Route: 042

REACTIONS (11)
  - Immobile [Unknown]
  - Finger deformity [Unknown]
  - Psoriasis [Unknown]
  - Nausea [Recovered/Resolved]
  - Pain [Unknown]
  - Bronchitis [Recovered/Resolved]
  - Vomiting [Recovered/Resolved]
  - Headache [Recovered/Resolved]
  - Nasopharyngitis [Recovered/Resolved]
  - Joint swelling [Unknown]
  - Hypoaesthesia [Unknown]
